FAERS Safety Report 4979122-2 (Version None)
Quarter: 2006Q2

REPORT INFORMATION
  Report Type: 
  Country: None (occurrence: None)
  Receive Date: 20060421
  Receipt Date: 20060412
  Transmission Date: 20061013
  Serious: Yes (Other)
  Sender: FDA-Public Use
  Company Number: DE-JNJFOC-20060402773

PATIENT
  Age: 31 Year
  Sex: Male
  Weight: 74 kg

DRUGS (2)
  1. DURAGESIC-100 [Suspect]
     Indication: PAIN
  2. DURAGESIC-100 [Suspect]
     Indication: SPINAL DISORDER

REACTIONS (1)
  - SLEEP PARALYSIS [None]
